FAERS Safety Report 19729675 (Version 1)
Quarter: 2021Q3

REPORT INFORMATION
  Report Type: Spontaneous
  Country: US (occurrence: US)
  Receive Date: 20210820
  Receipt Date: 20210820
  Transmission Date: 20211014
  Serious: No
  Sender: FDA-Public Use
  Company Number: US-SA-2021SA272765

PATIENT
  Age: 56 Year
  Sex: Female

DRUGS (15)
  1. CARVEDILOL. [Concomitant]
     Active Substance: CARVEDILOL
  2. VITAMIN D3 [Concomitant]
     Active Substance: CHOLECALCIFEROL
  3. DIAZEPAM. [Concomitant]
     Active Substance: DIAZEPAM
  4. TYLENOL [Concomitant]
     Active Substance: ACETAMINOPHEN
  5. ELIQUIS [Concomitant]
     Active Substance: APIXABAN
  6. FLUOCINOLONE ACETONIDE. [Concomitant]
     Active Substance: FLUOCINOLONE ACETONIDE
  7. TRIAMCINOLONE ACETONIDE. [Concomitant]
     Active Substance: TRIAMCINOLONE ACETONIDE
  8. LISINOPRIL. [Concomitant]
     Active Substance: LISINOPRIL
  9. MODERNA COVID?19 VACCINE [Concomitant]
     Active Substance: CX-024414
  10. COENZYME Q10 [Concomitant]
     Active Substance: DIETARY SUPPLEMENT\UBIDECARENONE
  11. DUPIXENT [Suspect]
     Active Substance: DUPILUMAB
     Indication: DERMATITIS ATOPIC
     Dosage: 300 MG, QOW
     Route: 058
  12. ALBUTEROL SULFATE. [Concomitant]
     Active Substance: ALBUTEROL SULFATE
  13. ATORVASTATIN CALCIUM. [Concomitant]
     Active Substance: ATORVASTATIN CALCIUM
  14. FLUOCINONIDE?E [Concomitant]
     Active Substance: FLUOCINONIDE
  15. TACROLIMUS. [Concomitant]
     Active Substance: TACROLIMUS

REACTIONS (1)
  - Injury corneal [Unknown]
